FAERS Safety Report 11539149 (Version 1)
Quarter: 2015Q3

REPORT INFORMATION
  Report Type: Spontaneous
  Country: CI (occurrence: CI)
  Receive Date: 20150923
  Receipt Date: 20150923
  Transmission Date: 20151125
  Serious: Yes (Other)
  Sender: FDA-Public Use
  Company Number: CI-ROCHE-1637429

PATIENT
  Age: 37 Year

DRUGS (3)
  1. XELODA [Concomitant]
     Active Substance: CAPECITABINE
     Indication: BREAST CANCER
     Route: 042
     Dates: start: 2013, end: 2014
  2. TAXOL [Concomitant]
     Active Substance: PACLITAXEL
     Indication: BREAST CANCER
     Route: 042
     Dates: start: 2013
  3. HERCEPTIN [Suspect]
     Active Substance: TRASTUZUMAB
     Indication: BREAST CANCER
     Route: 040
     Dates: start: 2013

REACTIONS (2)
  - Invasive lobular breast carcinoma [Recovered/Resolved]
  - Bone neoplasm [Recovered/Resolved]

NARRATIVE: CASE EVENT DATE: 2013
